FAERS Safety Report 20874000 (Version 1)
Quarter: 2022Q2

REPORT INFORMATION
  Report Type: Spontaneous
  Country: US (occurrence: None)
  Receive Date: 20220525
  Receipt Date: 20220525
  Transmission Date: 20220721
  Serious: No
  Sender: FDA-Public Use
  Company Number: None

PATIENT
  Age: 32 Year
  Sex: Male
  Weight: 62.91 kg

DRUGS (12)
  1. TAFINLAR [Suspect]
     Active Substance: DABRAFENIB MESYLATE
     Indication: Metastatic malignant melanoma
     Dosage: OTHER FREQUENCY : Q12HRS;?
     Route: 048
  2. MEKINIST [Suspect]
     Active Substance: TRAMETINIB DIMETHYL SULFOXIDE
     Indication: Metastatic malignant melanoma
  3. BUDESONIDE ER [Concomitant]
  4. CALCIUM CARBONATE [Concomitant]
  5. DEXAMETHASONE [Concomitant]
  6. LEVETIRACETAM [Concomitant]
  7. LEXAPRO [Concomitant]
     Active Substance: ESCITALOPRAM OXALATE
  8. LORAZEPAM [Concomitant]
  9. NAMENDA [Concomitant]
  10. OMEPRAZOLE [Concomitant]
  11. PROCHLORPERAZINE [Concomitant]
  12. MALEATE [Concomitant]

REACTIONS (2)
  - Disease progression [None]
  - Therapy cessation [None]
